FAERS Safety Report 5204241-5 (Version None)
Quarter: 2007Q1

REPORT INFORMATION
  Report Type: 
  Country: None (occurrence: None)
  Receive Date: 20070110
  Receipt Date: 20060118
  Transmission Date: 20070707
  Serious: No
  Sender: FDA-Public Use
  Company Number: US-BRISTOL-MYERS SQUIBB COMPANY-13252390

PATIENT
  Age: 26 Year
  Sex: Female

DRUGS (6)
  1. ABILIFY [Suspect]
     Dosage: INITIAL DOSE IS UNKNOWN, DOSE INCREASED TO 30 MG DAILY ON 21-SEP-2005
     Route: 048
     Dates: end: 20060113
  2. PROZAC [Concomitant]
  3. SEROQUEL [Concomitant]
  4. KLONOPIN [Concomitant]
  5. WELLBUTRIN SR [Concomitant]
  6. TRAZODONE HCL [Concomitant]

REACTIONS (1)
  - VOMITING [None]
